FAERS Safety Report 17390730 (Version 9)
Quarter: 2025Q3

REPORT INFORMATION
  Report Type: Spontaneous
  Country: EU (occurrence: EU)
  Receive Date: 20200207
  Receipt Date: 20250707
  Transmission Date: 20251021
  Serious: Yes (Other)
  Sender: AUROBINDO
  Company Number: EU-ACCORD-170582

PATIENT
  Age: 18 Year
  Sex: Male

DRUGS (11)
  1. LEVETIRACETAM [Suspect]
     Active Substance: LEVETIRACETAM
     Indication: Epilepsy
     Route: 065
     Dates: start: 2017, end: 201806
  2. LEVETIRACETAM [Suspect]
     Active Substance: LEVETIRACETAM
     Indication: Idiopathic generalised epilepsy
     Route: 065
     Dates: start: 2017
  3. LEVETIRACETAM [Suspect]
     Active Substance: LEVETIRACETAM
     Route: 065
     Dates: start: 2017
  4. LEVETIRACETAM [Suspect]
     Active Substance: LEVETIRACETAM
     Dosage: 1200 MILLIGRAM, ONCE A DAY (DOSE GRADUALLY REDUCED )
     Route: 065
     Dates: start: 2018
  5. LEVETIRACETAM [Suspect]
     Active Substance: LEVETIRACETAM
     Route: 065
     Dates: start: 201806, end: 201807
  6. LEVETIRACETAM [Suspect]
     Active Substance: LEVETIRACETAM
     Dosage: 1200 MILLIGRAM, ONCE A DAY
     Route: 065
     Dates: start: 201806, end: 201901
  7. LEVETIRACETAM [Suspect]
     Active Substance: LEVETIRACETAM
     Route: 065
     Dates: start: 201901
  8. VALPROATE SODIUM [Suspect]
     Active Substance: VALPROATE SODIUM
     Indication: Epilepsy
     Route: 065
     Dates: end: 201804
  9. VALPROATE SODIUM [Suspect]
     Active Substance: VALPROATE SODIUM
     Indication: Idiopathic generalised epilepsy
  10. RISPERIDONE [Suspect]
     Active Substance: RISPERIDONE
     Indication: Aggression
     Dosage: 0.75 MILLIGRAM, ONCE A DAY,0.75 MG IN 2 DIVIDED DOSES
     Route: 065
     Dates: start: 2017
  11. HYDROXYZINE [Suspect]
     Active Substance: HYDROXYZINE HYDROCHLORIDE
     Indication: Aggression
     Dosage: 60 MILLIGRAM, ONCE A DAY,60 MILLIGRAM DAILY; 60 MG/D IN 3 DIVIDED DOSES
     Route: 065
     Dates: start: 2017

REACTIONS (4)
  - Aggression [Recovered/Resolved]
  - Hypersexuality [Recovering/Resolving]
  - Sexual dysfunction [Recovering/Resolving]
  - Drug ineffective [Unknown]

NARRATIVE: CASE EVENT DATE: 20170101
